FAERS Safety Report 4441076-5 (Version None)
Quarter: 2004Q3

REPORT INFORMATION
  Report Type: 
  Country: None (occurrence: None)
  Receive Date: 20040827
  Receipt Date: 20040614
  Transmission Date: 20050211
  Serious: Yes (Other)
  Sender: FDA-Public Use
  Company Number: 04-0041SU

PATIENT
  Sex: Female

DRUGS (2)
  1. SULAR [Suspect]
     Indication: HYPERTENSION
     Dosage: 20 MG., QD, PO
     Route: 048
  2. ACCUPRIL [Concomitant]

REACTIONS (1)
  - ALOPECIA [None]
